FAERS Safety Report 9717078 (Version 3)
Quarter: 2015Q3

REPORT INFORMATION
  Report Type: Spontaneous
  Country: US (occurrence: US)
  Receive Date: 20131127
  Receipt Date: 20150803
  Transmission Date: 20151125
  Serious: No
  Sender: FDA-Public Use
  Company Number: US-GILEAD-2009-0020048

PATIENT
  Age: 76 Year
  Sex: Female
  Weight: 65.77 kg

DRUGS (10)
  1. COREG CR [Concomitant]
     Active Substance: CARVEDILOL PHOSPHATE
  2. LIBRAX [Concomitant]
     Active Substance: CHLORDIAZEPOXIDE HYDROCHLORIDE\CLIDINIUM BROMIDE
  3. DIOVAN [Concomitant]
     Active Substance: VALSARTAN
  4. SOTALOL HCL [Concomitant]
     Active Substance: SOTALOL
  5. LETAIRIS [Suspect]
     Active Substance: AMBRISENTAN
     Indication: PULMONARY ARTERIAL HYPERTENSION
     Route: 048
     Dates: start: 20080208
  6. SPIRONOLACTONE. [Concomitant]
     Active Substance: SPIRONOLACTONE
  7. LOMOTIL [Concomitant]
     Active Substance: ATROPINE SULFATE\DIPHENOXYLATE HYDROCHLORIDE
  8. REVATIO [Concomitant]
     Active Substance: SILDENAFIL CITRATE
  9. FUROSEMIDE. [Concomitant]
     Active Substance: FUROSEMIDE
  10. METHSCOPOLAMINE [Concomitant]
     Active Substance: METHSCOPOLAMINE\METHSCOPOLAMINE BROMIDE

REACTIONS (1)
  - Anaemia [Not Recovered/Not Resolved]
